FAERS Safety Report 6761478-1 (Version None)
Quarter: 2010Q2

REPORT INFORMATION
  Report Type: 
  Country: None (occurrence: None)
  Receive Date: 20100607
  Receipt Date: 20100527
  Transmission Date: 20101027
  Serious: Yes (Hospitalization)
  Sender: FDA-Public Use
  Company Number: 2009AC000460

PATIENT
  Age: 66 Year
  Sex: Female

DRUGS (22)
  1. DIGOXIN [Suspect]
     Dosage: .25 MG;PO
     Route: 048
     Dates: start: 20040101
  2. DIGOXIN [Suspect]
     Dosage: .25 MG;QD;PO
     Route: 048
     Dates: start: 20020201, end: 20080901
  3. DIGOXIN [Suspect]
     Dosage: 0.25 MG;QD;PO
     Route: 048
     Dates: start: 20090520, end: 20091201
  4. TORSEMIDE [Concomitant]
  5. AVANDAMET [Concomitant]
  6. ALPRAZOLAM [Concomitant]
  7. DICYCLOMINE [Concomitant]
  8. PANTOPRAZOLE [Concomitant]
  9. DILTIAZEM [Concomitant]
  10. PROPAFENONE HCL [Concomitant]
  11. PREDNISONE [Concomitant]
  12. OXYCODONE [Concomitant]
  13. ATENOLOL [Concomitant]
  14. CIPROFLOXACIN [Concomitant]
  15. CARISOPRODOL [Concomitant]
  16. FLUCONAZOLE [Concomitant]
  17. MEPERIDINE HCL [Concomitant]
  18. METHYLPREDNISOLONE ACETATE [Concomitant]
  19. ERYTHROCIN LACTOBIONATE [Concomitant]
  20. PROMETHAZINE [Concomitant]
  21. RANITIDINE [Concomitant]
  22. *5 HYALGAN [Concomitant]

REACTIONS (14)
  - ANGINA PECTORIS [None]
  - ANXIETY [None]
  - CHEST PAIN [None]
  - DIARRHOEA [None]
  - DYSPNOEA [None]
  - DYSPNOEA EXERTIONAL [None]
  - ECONOMIC PROBLEM [None]
  - HEART RATE IRREGULAR [None]
  - INJURY [None]
  - NAUSEA [None]
  - PAIN [None]
  - PALPITATIONS [None]
  - STRESS [None]
  - VENTRICULAR HYPOKINESIA [None]
